FAERS Safety Report 11564058 (Version 1)
Quarter: 2015Q3

REPORT INFORMATION
  Report Type: Spontaneous
  Country: US (occurrence: US)
  Receive Date: 20150916
  Receipt Date: 20150916
  Transmission Date: 20151125
  Serious: No
  Sender: FDA-Public Use
  Company Number: US-ELI_LILLY_AND_COMPANY-US200902007471

PATIENT
  Age: 77 Year
  Sex: Female

DRUGS (3)
  1. FORTEO [Suspect]
     Active Substance: TERIPARATIDE
     Dosage: UNK, UNK
     Dates: start: 20090108, end: 20090203
  2. FORTEO [Suspect]
     Active Substance: TERIPARATIDE
     Dates: start: 20090216
  3. DIURETICS [Concomitant]
     Active Substance: UNSPECIFIED INGREDIENT
     Dosage: UNK, 3/W

REACTIONS (2)
  - Pollakiuria [Unknown]
  - Abdominal discomfort [Not Recovered/Not Resolved]

NARRATIVE: CASE EVENT DATE: 20090203
